FAERS Safety Report 10084931 (Version 1)
Quarter: 2014Q2

REPORT INFORMATION
  Report Type: Spontaneous
  Country: TR (occurrence: TR)
  Receive Date: 20140417
  Receipt Date: 20140417
  Transmission Date: 20141212
  Serious: Yes (Death, Hospitalization)
  Sender: FDA-Public Use
  Company Number: PHHY2014TR042202

PATIENT
  Age: 67 Year
  Sex: Male

DRUGS (4)
  1. MIRTAZAPINE [Suspect]
     Indication: APATHY
     Dosage: 15 MG, UNK
  2. MIRTAZAPINE [Suspect]
     Indication: DISTURBANCE IN ATTENTION
  3. SERTRALINE [Suspect]
     Indication: DEPRESSION
     Dosage: 50 MG PER DAY
  4. SERTRALINE [Suspect]
     Dosage: 100 MG PER DAY

REACTIONS (7)
  - Death [Fatal]
  - Cardiac arrest [Unknown]
  - Ventricular fibrillation [Unknown]
  - Chest discomfort [Unknown]
  - Chest pain [Unknown]
  - Dyspnoea [Unknown]
  - Respiratory arrest [Unknown]
